FAERS Safety Report 4539629-9 (Version None)
Quarter: 2004Q4

REPORT INFORMATION
  Report Type: 
  Country: None (occurrence: None)
  Receive Date: 20041223
  Receipt Date: 20041221
  Transmission Date: 20050328
  Serious: Yes (Death)
  Sender: FDA-Public Use
  Company Number: HQWYE962314DEC04

PATIENT
  Age: 57 Year
  Sex: Male

DRUGS (1)
  1. AMIODARONE      (AMIODARONE ) [Suspect]
     Indication: VENTRICULAR ARRHYTHMIA
     Dates: start: 20030510

REACTIONS (2)
  - BRADYCARDIA [None]
  - LIVER FUNCTION TEST ABNORMAL [None]
